FAERS Safety Report 5993988-9 (Version None)
Quarter: 2008Q4

REPORT INFORMATION
  Report Type: 
  Country: None (occurrence: None)
  Receive Date: 20081212
  Receipt Date: 20081201
  Transmission Date: 20090506
  Serious: Yes (Hospitalization)
  Sender: FDA-Public Use
  Company Number: US-CVT-080102

PATIENT

DRUGS (3)
  1. RANEXA [Suspect]
     Indication: DRUG USE FOR UNKNOWN INDICATION
     Dosage: 500 MG, BID
     Route: 048
     Dates: start: 20080101, end: 20081101
  2. RANEXA [Suspect]
     Dosage: 500 MG, QD
     Route: 048
     Dates: start: 20081101, end: 20081129
  3. TOPROL-XL [Concomitant]

REACTIONS (5)
  - DIZZINESS [None]
  - HEART RATE DECREASED [None]
  - ORTHOSTATIC HYPOTENSION [None]
  - SYNCOPE [None]
  - UPPER RESPIRATORY TRACT INFECTION [None]
